FAERS Safety Report 19224004 (Version 3)
Quarter: 2022Q1

REPORT INFORMATION
  Report Type: Spontaneous
  Country: CA (occurrence: CA)
  Receive Date: 20210505
  Receipt Date: 20220119
  Transmission Date: 20220423
  Serious: Yes (Other)
  Sender: FDA-Public Use
  Company Number: CA-PFIZER INC-2021493867

PATIENT
  Age: 83 Year
  Sex: Male

DRUGS (13)
  1. VYNDAQEL [Suspect]
     Active Substance: TAFAMIDIS MEGLUMINE
     Indication: Cardiac amyloidosis
     Dosage: 80 MG, 1X/DAY
     Route: 048
     Dates: start: 20210320
  2. ALFUZOSIN HYDROCHLORIDE [Concomitant]
     Active Substance: ALFUZOSIN HYDROCHLORIDE
     Dosage: UNK
  3. ALFUZOSIN [Concomitant]
     Active Substance: ALFUZOSIN
     Dosage: 10 MG, DAILY
  4. FUROSEMIDE [Concomitant]
     Active Substance: FUROSEMIDE
     Dosage: 20 MG, DAILY ( 20MG )
  5. CODEINE [Concomitant]
     Active Substance: CODEINE
     Dosage: 30 MG, DAILY (30 30 MG)
  6. INCRUSE ELLIPTA [Concomitant]
     Active Substance: UMECLIDINIUM BROMIDE
     Dosage: 62.5 MCG DAILY
  7. NITROFURANTOIN [Concomitant]
     Active Substance: NITROFURANTOIN
     Dosage: UNK
  8. NITROFURANTOIN [Concomitant]
     Active Substance: NITROFURANTOIN
     Dosage: 100 MG, DAILY
  9. PERINDOPRIL ERBUMINE [Concomitant]
     Active Substance: PERINDOPRIL ERBUMINE
     Dosage: UNK
  10. PANTOPRAZOLE [Concomitant]
     Active Substance: PANTOPRAZOLE
     Dosage: 40 MG, DAILY
  11. ROSUVASTATIN [Concomitant]
     Active Substance: ROSUVASTATIN
     Dosage: 40 MG, DAILY
  12. TOVIAZ [Concomitant]
     Active Substance: FESOTERODINE FUMARATE
     Dosage: 4 MG, DAILY
  13. XARELTO [Concomitant]
     Active Substance: RIVAROXABAN
     Dosage: 20 MG, DAILY

REACTIONS (14)
  - Lung carcinoma cell type unspecified stage IV [Unknown]
  - Glomerular filtration rate abnormal [Unknown]
  - Encephalomalacia [Unknown]
  - Cerebral infarction [Unknown]
  - Cerebral atrophy [Unknown]
  - Movement disorder [Not Recovered/Not Resolved]
  - Early satiety [Unknown]
  - Pulmonary mass [Unknown]
  - Left ventricular hypertrophy [Unknown]
  - Fall [Unknown]
  - Dizziness [Unknown]
  - Balance disorder [Unknown]
  - Left ventricular dysfunction [Unknown]
  - White matter lesion [Unknown]

NARRATIVE: CASE EVENT DATE: 20210301
